FAERS Safety Report 7002114-9 (Version None)
Quarter: 2010Q3

REPORT INFORMATION
  Report Type: 
  Country: None (occurrence: None)
  Receive Date: 20100920
  Receipt Date: 20100205
  Transmission Date: 20110219
  Serious: Yes (Hospitalization)
  Sender: FDA-Public Use
  Company Number: US-ASTRAZENECA-2009SE19175

PATIENT
  Age: 501 Month
  Sex: Male
  Weight: 98.4 kg

DRUGS (4)
  1. SEROQUEL [Suspect]
     Indication: SCHIZOAFFECTIVE DISORDER
     Route: 048
     Dates: start: 20010521
  2. SEROQUEL [Suspect]
     Route: 048
     Dates: start: 20010521
  3. SEROQUEL [Suspect]
     Route: 048
     Dates: start: 20010621
  4. SEROQUEL [Suspect]
     Route: 048
     Dates: start: 20020503, end: 20020501

REACTIONS (4)
  - DIABETES MELLITUS INADEQUATE CONTROL [None]
  - PERIRECTAL ABSCESS [None]
  - SCHIZOPHRENIA [None]
  - TYPE 2 DIABETES MELLITUS [None]
